FAERS Safety Report 9069036 (Version 4)
Quarter: 2013Q2

REPORT INFORMATION
  Report Type: Spontaneous
  Country: GR (occurrence: GR)
  Receive Date: 20130215
  Receipt Date: 20130419
  Transmission Date: 20140414
  Serious: Yes (Hospitalization, Other)
  Sender: FDA-Public Use
  Company Number: GR-AMGEN-GRCSP2013010134

PATIENT
  Age: 80 Year
  Sex: Male
  Weight: 85 kg

DRUGS (7)
  1. NPLATE [Suspect]
     Indication: THROMBOCYTOPENIC PURPURA
     Dosage: 5 MUG/KG, UNK
     Dates: start: 20121026
  2. ZOFIX [Concomitant]
     Indication: HEPATIC CIRRHOSIS
     Dosage: 1 UNIT, QD
     Route: 048
  3. ZEFFIX [Concomitant]
     Indication: HEPATIC CIRRHOSIS
     Dosage: 1 UNIT, QD
     Route: 048
  4. ZYLORIC [Concomitant]
     Indication: HYPERURICAEMIA
     Dosage: 1 UNIT, QD
     Route: 048
  5. LASIX                              /00032601/ [Concomitant]
     Indication: HEPATIC CIRRHOSIS
     Dosage: 0.5 UNIT, QD
     Route: 048
  6. LOSEC                              /00661201/ [Concomitant]
     Indication: GASTROINTESTINAL DISORDER
     Dosage: 1 UNIT, QD
     Route: 048
  7. ALDACTONE                          /00006201/ [Concomitant]
     Indication: HEPATIC CIRRHOSIS
     Dosage: 1 UNIT, QWK
     Route: 058
     Dates: start: 20121026

REACTIONS (1)
  - Deep vein thrombosis [Recovered/Resolved]
